FAERS Safety Report 6496733-6 (Version None)
Quarter: 2009Q4

REPORT INFORMATION
  Report Type: 
  Country: None (occurrence: None)
  Receive Date: 20091211
  Receipt Date: 20091120
  Transmission Date: 20100525
  Serious: Yes (Other)
  Sender: FDA-Public Use
  Company Number: MC200900418

PATIENT
  Age: 68 Year
  Sex: Female
  Weight: 72.7 kg

DRUGS (4)
  1. ANGIOMAX [Suspect]
     Indication: PERCUTANEOUS CORONARY INTERVENTION
     Dosage: 0.75 MG.KG, BOLUS, INTRAVENOUS, 26 ML, HR, INTRAVENOUS
     Route: 042
     Dates: start: 20091120, end: 20091120
  2. VERSED [Concomitant]
  3. FENTANYL CITRATE [Concomitant]
  4. NITROGLYCERIN [Concomitant]

REACTIONS (3)
  - DEVICE BREAKAGE [None]
  - PERICARDIAL EFFUSION [None]
  - PROCEDURAL COMPLICATION [None]
